FAERS Safety Report 10237257 (Version 1)
Quarter: 2014Q2

REPORT INFORMATION
  Report Type: Spontaneous
  Country: US (occurrence: US)
  Receive Date: 20140613
  Receipt Date: 20140613
  Transmission Date: 20141212
  Serious: No
  Sender: FDA-Public Use
  Company Number: US-B.I. PHARMACEUTICALS,INC./RIDGEFIELD-2014-BI-25326BP

PATIENT
  Age: 65 Year
  Sex: Female

DRUGS (3)
  1. ZANTAC 150 (RANITIDINE HYDROCHLORIDE) [Suspect]
     Indication: DYSPEPSIA
     Route: 048
     Dates: start: 20140603
  2. ZANTAC 150 (RANITIDINE HYDROCHLORIDE) [Suspect]
     Indication: DYSPEPSIA
  3. SYNTHROID [Concomitant]
     Indication: HYPOTHYROIDISM
     Dosage: 112 MG
     Route: 048
     Dates: start: 1984

REACTIONS (2)
  - Abdominal pain [Recovered/Resolved]
  - Pruritus [Not Recovered/Not Resolved]
